FAERS Safety Report 12531370 (Version 1)
Quarter: 2016Q3

REPORT INFORMATION
  Report Type: Report from Study
  Country: US (occurrence: US)
  Receive Date: 20160706
  Receipt Date: 20160706
  Transmission Date: 20161109
  Serious: Yes (Other)
  Sender: FDA-Public Use
  Company Number: US-TAKEDA-2016TUS010896

PATIENT
  Age: 61 Year
  Sex: Female
  Weight: 171 kg

DRUGS (4)
  1. VEDOLIZUMAB [Suspect]
     Active Substance: VEDOLIZUMAB
     Indication: CROHN^S DISEASE
     Dosage: 300 MG, UNK
     Route: 042
     Dates: start: 201507
  2. LEVOTHYROXINE. [Concomitant]
     Active Substance: LEVOTHYROXINE
     Indication: THYROID DISORDER
     Dosage: 100 ?G, UNK
     Dates: start: 2013
  3. HYDROCHLOROTHIAZIDE. [Concomitant]
     Active Substance: HYDROCHLOROTHIAZIDE
     Indication: SWELLING
     Dosage: 10 MG, UNK
     Route: 065
     Dates: start: 2013
  4. SERTRALINE [Concomitant]
     Active Substance: SERTRALINE HYDROCHLORIDE
     Indication: ANXIETY
     Dosage: 100 MG, UNK
     Dates: start: 2014

REACTIONS (8)
  - Fall [Unknown]
  - Fractured sacrum [Not Recovered/Not Resolved]
  - Paranasal sinus hypersecretion [Unknown]
  - Cough [Recovering/Resolving]
  - Spinal cord neoplasm [Not Recovered/Not Resolved]
  - Weight increased [Not Recovered/Not Resolved]
  - Balance disorder [Unknown]
  - Neuralgia [Recovering/Resolving]

NARRATIVE: CASE EVENT DATE: 201508
